FAERS Safety Report 12085323 (Version 4)
Quarter: 2016Q2

REPORT INFORMATION
  Report Type: Spontaneous
  Country: JP (occurrence: JP)
  Receive Date: 20160217
  Receipt Date: 20160406
  Transmission Date: 20160815
  Serious: Yes (Other)
  Sender: FDA-Public Use
  Company Number: JP-BAXTER-2016BAX007787

PATIENT
  Age: 46 Year
  Sex: Female

DRUGS (12)
  1. ENDOXAN [Suspect]
     Active Substance: CYCLOPHOSPHAMIDE
     Indication: SAPHO SYNDROME
     Route: 048
     Dates: start: 20150811
  2. CYMBALTA [Suspect]
     Active Substance: DULOXETINE HYDROCHLORIDE
     Route: 048
     Dates: start: 20151125, end: 20160102
  3. LYRICA [Suspect]
     Active Substance: PREGABALIN
     Indication: FIBROMYALGIA
     Route: 048
     Dates: start: 20151104
  4. LYRICA [Suspect]
     Active Substance: PREGABALIN
     Route: 048
     Dates: start: 20151216
  5. LYRICA [Suspect]
     Active Substance: PREGABALIN
     Route: 048
     Dates: start: 20160114
  6. CARERAM [Suspect]
     Active Substance: IGURATIMOD
     Indication: SAPHO SYNDROME
     Route: 048
     Dates: start: 20151104
  7. PREDONINE [Suspect]
     Active Substance: PREDNISOLONE\PREDNISOLONE ACETATE\PREDNISOLONE SODIUM SUCCINATE
     Indication: SAPHO SYNDROME
     Route: 048
     Dates: start: 20150811
  8. THEO-DUR [Concomitant]
     Active Substance: THEOPHYLLINE ANHYDROUS
     Indication: ASTHMA
     Route: 048
     Dates: end: 20151103
  9. CYMBALTA [Suspect]
     Active Substance: DULOXETINE HYDROCHLORIDE
     Route: 048
     Dates: start: 20150930
  10. CYMBALTA [Suspect]
     Active Substance: DULOXETINE HYDROCHLORIDE
     Indication: FIBROMYALGIA
     Route: 048
     Dates: start: 20150811
  11. ENDOXAN [Suspect]
     Active Substance: CYCLOPHOSPHAMIDE
     Indication: OFF LABEL USE
  12. CELECOX [Suspect]
     Active Substance: CELECOXIB
     Indication: SAPHO SYNDROME
     Route: 048
     Dates: start: 20150811

REACTIONS (10)
  - Vertigo [Recovering/Resolving]
  - Dyspnoea [Unknown]
  - Hypoaesthesia [Not Recovered/Not Resolved]
  - Dizziness [Unknown]
  - Stomatitis [Unknown]
  - Headache [Recovering/Resolving]
  - Thirst [Unknown]
  - Intracranial pressure increased [Recovering/Resolving]
  - Cough [Unknown]
  - Incontinence [Unknown]

NARRATIVE: CASE EVENT DATE: 20150930
